FAERS Safety Report 8776767 (Version 2)
Quarter: 2012Q4

REPORT INFORMATION
  Report Type: 
  Country: US (occurrence: US)
  Receive Date: 20120910
  Receipt Date: 20121109
  Transmission Date: 20130627
  Serious: Yes (Congenital Anomaly)
  Sender: FDA-Public Use
  Company Number: US-TEVA-358010USA

PATIENT

DRUGS (2)
  1. CLARAVIS [Suspect]
     Route: 015
  2. ORAL CONTRACEPTIVE NOS [Suspect]
     Route: 015

REACTIONS (2)
  - Congenital hydronephrosis [Recovered/Resolved]
  - Maternal drugs affecting foetus [None]
